FAERS Safety Report 16433048 (Version 1)
Quarter: 2019Q2

REPORT INFORMATION
  Report Type: Spontaneous
  Country: DE (occurrence: DE)
  Receive Date: 20190614
  Receipt Date: 20190614
  Transmission Date: 20190711
  Serious: Yes (Other)
  Sender: FDA-Public Use
  Company Number: PHHY2019DE109367

PATIENT
  Age: 20 Year
  Sex: Male

DRUGS (6)
  1. DOXYCYCLINE. [Suspect]
     Active Substance: DOXYCYCLINE
     Indication: ANTIBIOTIC PROPHYLAXIS
     Route: 048
  2. LEVOFLOXACIN. [Concomitant]
     Active Substance: LEVOFLOXACIN
     Indication: ANTIBIOTIC PROPHYLAXIS
  3. CEFUROXIME. [Suspect]
     Active Substance: CEFUROXIME
     Indication: ANTIBIOTIC PROPHYLAXIS
     Dosage: UNK
     Route: 048
  4. LEVOFLOXACIN. [Concomitant]
     Active Substance: LEVOFLOXACIN
     Indication: SERRATIA INFECTION
     Dosage: DAILY IN THERAPEUTIC DOSES
     Route: 048
  5. CEFACLOR. [Suspect]
     Active Substance: CEFACLOR
     Indication: ANTIBIOTIC PROPHYLAXIS
     Route: 048
  6. CEFUROXIME. [Suspect]
     Active Substance: CEFUROXIME
     Indication: SERRATIA INFECTION
     Dosage: DAILY IN THERAPEUTIC DOSES
     Route: 048

REACTIONS (3)
  - Drug resistance [Unknown]
  - Infection [Unknown]
  - Pneumonia [Unknown]
